FAERS Safety Report 22610019 (Version 1)
Quarter: 2023Q2

REPORT INFORMATION
  Report Type: Report from Study
  Country: US (occurrence: US)
  Receive Date: 20230616
  Receipt Date: 20230616
  Transmission Date: 20230721
  Serious: Yes (Other)
  Sender: FDA-Public Use
  Company Number: US-ALXN-A202307918

PATIENT
  Sex: Female

DRUGS (1)
  1. STRENSIQ [Suspect]
     Active Substance: ASFOTASE ALFA
     Indication: Product used for unknown indication
     Dosage: UNK
     Route: 065

REACTIONS (13)
  - Bradycardia [Unknown]
  - Hypotension [Unknown]
  - Dizziness [Unknown]
  - Paraesthesia oral [Recovered/Resolved]
  - Paraesthesia [Unknown]
  - Pain [Unknown]
  - Bone pain [Unknown]
  - Arthralgia [Unknown]
  - Fall [Unknown]
  - Foot fracture [Unknown]
  - Injection site pruritus [Unknown]
  - Injection site rash [Unknown]
  - Contusion [Unknown]
